FAERS Safety Report 10011957 (Version 1)
Quarter: 2014Q1

REPORT INFORMATION
  Report Type: Spontaneous
  Country: GB (occurrence: GB)
  Receive Date: 20140314
  Receipt Date: 20140314
  Transmission Date: 20141002
  Serious: Yes (Other)
  Sender: FDA-Public Use
  Company Number: PHFR2014GB002152

PATIENT
  Sex: Female

DRUGS (1)
  1. VOLTAROL [Suspect]
     Dosage: 50 MG, UNK

REACTIONS (1)
  - Pain [Unknown]
